FAERS Safety Report 15348757 (Version 1)
Quarter: 2018Q3

REPORT INFORMATION
  Report Type: Spontaneous
  Country: US (occurrence: US)
  Receive Date: 20180829
  Receipt Date: 20180829
  Transmission Date: 20181010
  Serious: Yes (Life-Threatening, Disabling)
  Sender: FDA-Public Use
  Company Number: None

PATIENT
  Age: 22 Year
  Sex: Female
  Weight: 120.15 kg

DRUGS (11)
  1. BUPROPION. [Concomitant]
     Active Substance: BUPROPION
  2. SYNTHROID [Concomitant]
     Active Substance: LEVOTHYROXINE SODIUM
  3. VITAM D3 [Concomitant]
  4. ABILIFY [Suspect]
     Active Substance: ARIPIPRAZOLE
     Indication: SCHIZOAFFECTIVE DISORDER BIPOLAR TYPE
     Route: 048
     Dates: start: 20000615, end: 20110101
  5. LAMOTRIGINE. [Concomitant]
     Active Substance: LAMOTRIGINE
  6. VITMIN B12 [Concomitant]
  7. FISH OIL [Concomitant]
     Active Substance: FISH OIL
  8. ATORVASTATIN [Concomitant]
     Active Substance: ATORVASTATIN
  9. ZIPRASIDONE. [Concomitant]
     Active Substance: ZIPRASIDONE
  10. LORAZEPAM. [Concomitant]
     Active Substance: LORAZEPAM
  11. JANUVIA [Concomitant]
     Active Substance: SITAGLIPTIN PHOSPHATE

REACTIONS (16)
  - Obsessive-compulsive disorder [None]
  - Product label confusion [None]
  - Tremor [None]
  - Hunger [None]
  - Judgement impaired [None]
  - Flatulence [None]
  - Diarrhoea [None]
  - Suicidal ideation [None]
  - Mental disorder [None]
  - Erectile dysfunction [None]
  - Weight increased [None]
  - Anhedonia [None]
  - Feeling abnormal [None]
  - Dysuria [None]
  - Diabetes mellitus [None]
  - Increased appetite [None]

NARRATIVE: CASE EVENT DATE: 20000615
